FAERS Safety Report 19145837 (Version 1)
Quarter: 2021Q2

REPORT INFORMATION
  Report Type: Spontaneous
  Country: US (occurrence: US)
  Receive Date: 20210416
  Receipt Date: 20210416
  Transmission Date: 20210717
  Serious: No
  Sender: FDA-Public Use
  Company Number: US-TAKEDA-2021TUS023225

PATIENT
  Age: 67 Year
  Sex: Female
  Weight: 57 kg

DRUGS (10)
  1. GAMMAGARD LIQUID [Suspect]
     Active Substance: HUMAN IMMUNOGLOBULIN G
     Indication: HYPOGAMMAGLOBULINAEMIA
     Dosage: 5 GRAM, 2/WEEK
     Route: 058
  2. CLARITIN [Concomitant]
     Active Substance: LORATADINE
     Indication: HYPERSENSITIVITY
     Dosage: UNK
     Route: 065
  3. BABY ASPIRIN [Concomitant]
     Active Substance: ASPIRIN
     Indication: PRODUCT USED FOR UNKNOWN INDICATION
     Dosage: 81 MILLIGRAM, QD
     Route: 065
  4. CALCIUM WITH D3 [Concomitant]
     Dosage: UNK UNK, QD
     Route: 065
  5. SIMVASTATIN. [Concomitant]
     Active Substance: SIMVASTATIN
     Indication: BLOOD CHOLESTEROL
     Dosage: UNK
     Route: 065
  6. PERCOCET [OXYCODONE HYDROCHLORIDE;OXYCODONE TEREPHTHALATE;PARACETAMOL] [Concomitant]
     Active Substance: ACETAMINOPHEN\OXYCODONE HYDROCHLORIDE\OXYCODONE TEREPHTHALATE
     Indication: PAIN
     Dosage: UNK
     Route: 065
  7. BIOTIN [Concomitant]
     Active Substance: BIOTIN
     Dosage: UNK UNK, QD
     Route: 065
  8. LYRICA [Concomitant]
     Active Substance: PREGABALIN
     Indication: NERVE DEGENERATION
     Route: 065
  9. NIACINAMIDE [Concomitant]
     Active Substance: NIACINAMIDE
     Dosage: UNK UNK, BID
     Route: 065
  10. TRAMADOL. [Concomitant]
     Active Substance: TRAMADOL
     Indication: PAIN
     Route: 065

REACTIONS (8)
  - Cardiac disorder [Unknown]
  - Product storage error [Unknown]
  - Fatigue [Unknown]
  - Malaise [Unknown]
  - Lethargy [Unknown]
  - Pyrexia [Unknown]
  - Varicose vein [Unknown]
  - Inappropriate schedule of product administration [Unknown]

NARRATIVE: CASE EVENT DATE: 20210402
